FAERS Safety Report 4872066-6 (Version None)
Quarter: 2005Q4

REPORT INFORMATION
  Report Type: 
  Country: None (occurrence: None)
  Receive Date: 20051230
  Receipt Date: 20051226
  Transmission Date: 20060501
  Serious: Yes (Other)
  Sender: FDA-Public Use
  Company Number: 2005-10-1270

PATIENT
  Age: 55 Year
  Sex: Male
  Weight: 98 kg

DRUGS (3)
  1. PEG-INTRON [Suspect]
     Indication: HEPATITIS C
     Dosage: 100 MCG QW SUBCUTANEOUS
     Route: 058
     Dates: start: 20050407, end: 20051028
  2. REBETOL [Suspect]
     Indication: HEPATITIS C
     Dosage: ORAL
     Route: 048
  3. OMEPRAL (OMEPRAZOLE) TABLETS [Concomitant]

REACTIONS (3)
  - HEPATIC ENCEPHALOPATHY [None]
  - LIVER DISORDER [None]
  - PLATELET COUNT DECREASED [None]
